FAERS Safety Report 8614843 (Version 5)
Quarter: 2012Q4

REPORT INFORMATION
  Report Type: 
  Country: NZ (occurrence: NZ)
  Receive Date: 20120614
  Receipt Date: 20121015
  Transmission Date: 20130627
  Serious: Yes (Other)
  Sender: FDA-Public Use
  Company Number: NZ-ELI_LILLY_AND_COMPANY-NZ201206001029

PATIENT
  Age: 25 Year
  Sex: Male
  Weight: 96.7 kg

DRUGS (4)
  1. ZYPREXA RELPREVV [Suspect]
     Indication: SCHIZOPHRENIA, PARANOID TYPE
     Dosage: 300 mg, 2/M
     Route: 030
     Dates: start: 20120419, end: 20120531
  2. ZYPREXA RELPREVV [Suspect]
     Dosage: 300 mg, 2/M
     Route: 030
  3. ALCOHOL [Concomitant]
  4. CANNABIS [Concomitant]

REACTIONS (10)
  - Dysarthria [Recovered/Resolved]
  - Gait disturbance [Recovered/Resolved]
  - Vision blurred [Recovered/Resolved]
  - Sedation [Recovered/Resolved]
  - Confusional state [Recovered/Resolved]
  - Ataxia [Recovered/Resolved]
  - Dizziness [Recovered/Resolved]
  - Asthenia [Recovered/Resolved]
  - Influenza [Unknown]
  - Weight increased [Recovered/Resolved]
